FAERS Safety Report 8530443-6 (Version None)
Quarter: 2012Q3

REPORT INFORMATION
  Report Type: 
  Country: None (occurrence: None)
  Receive Date: 20120723
  Receipt Date: 20120717
  Transmission Date: 20120928
  Serious: Yes (Disabling)
  Sender: FDA-Public Use
  Company Number: US-SANOFI-AVENTIS-2012SA051351

PATIENT
  Sex: Female

DRUGS (1)
  1. ALLEGRA-D 12 HOUR [Suspect]

REACTIONS (1)
  - DISABILITY [None]
